FAERS Safety Report 8389908-2 (Version None)
Quarter: 2012Q2

REPORT INFORMATION
  Report Type: 
  Country: None (occurrence: None)
  Receive Date: 20120522
  Receipt Date: 20120510
  Transmission Date: 20120825
  Serious: Yes (Other)
  Sender: FDA-Public Use
  Company Number: ENTC2012-0202

PATIENT
  Age: 82 Year
  Sex: Male

DRUGS (11)
  1. DIAMICRON [Concomitant]
  2. TRAMADOL HYDROCHLORIDE [Concomitant]
  3. UROLOSIN [Concomitant]
  4. GALVUS [Concomitant]
  5. ASPIRIN [Concomitant]
  6. STALEVO 100 [Suspect]
     Indication: PARKINSON'S DISEASE
     Dosage: 1 DF DAILY, 50/12.5/200 MG, ORAL
     Route: 048
     Dates: start: 20110601, end: 20120201
  7. NEURONTIN [Concomitant]
  8. VALDOXAN [Concomitant]
  9. NOCTAMID [Concomitant]
  10. AZILECT [Suspect]
     Indication: PARKINSON'S DISEASE
     Dosage: 1 MG, DAILY
     Dates: start: 20110601
  11. OPIREN [Concomitant]

REACTIONS (3)
  - RENAL FAILURE [None]
  - MALNUTRITION [None]
  - DIARRHOEA [None]
